FAERS Safety Report 6097915-8 (Version None)
Quarter: 2009Q1

REPORT INFORMATION
  Report Type: 
  Country: None (occurrence: None)
  Receive Date: 20090227
  Receipt Date: 20090225
  Transmission Date: 20090719
  Serious: Yes (Death)
  Sender: FDA-Public Use
  Company Number: PHHY2009SI06935

PATIENT
  Sex: Male

DRUGS (1)
  1. LESCOL LES+SRF [Suspect]
     Dosage: UNK
     Dates: start: 20060424

REACTIONS (1)
  - DEATH [None]
